FAERS Safety Report 21175131 (Version 3)
Quarter: 2022Q4

REPORT INFORMATION
  Report Type: Spontaneous
  Country: US (occurrence: US)
  Receive Date: 20220805
  Receipt Date: 20221011
  Transmission Date: 20230113
  Serious: No
  Sender: FDA-Public Use
  Company Number: US-BRISTOL-MYERS SQUIBB COMPANY-2022-084792

PATIENT
  Age: 80 Year
  Sex: Male

DRUGS (1)
  1. INREBIC [Suspect]
     Active Substance: FEDRATINIB HYDROCHLORIDE
     Indication: Product used for unknown indication
     Dosage: DOSE: TAKE 4 CAPSULES WITH A HIGH FAT MEAL TO REDUCE NAUSEA
     Route: 048

REACTIONS (3)
  - Cough [Unknown]
  - Feeling abnormal [Unknown]
  - Nausea [Unknown]
